FAERS Safety Report 14648271 (Version 1)
Quarter: 2018Q1

REPORT INFORMATION
  Report Type: Other
  Country: US (occurrence: TH)
  Receive Date: 20180316
  Receipt Date: 20180316
  Transmission Date: 20180509
  Serious: Yes (Hospitalization)
  Sender: FDA-Public Use
  Company Number: TH-BRECKENRIDGE PHARMACEUTICAL, INC.-2043938

PATIENT
  Age: 19 Year
  Sex: Male
  Weight: 42 kg

DRUGS (5)
  1. DULOXETINE. [Concomitant]
     Active Substance: DULOXETINE
  2. CLONAZEPAM. [Concomitant]
     Active Substance: CLONAZEPAM
  3. MORPHINE SULFATE. [Concomitant]
     Active Substance: MORPHINE SULFATE
  4. MEGESTROL ACETATE. [Suspect]
     Active Substance: MEGESTROL ACETATE
     Indication: CACHEXIA
  5. PREGABALIN. [Concomitant]
     Active Substance: PREGABALIN

REACTIONS (1)
  - Shock [Recovered/Resolved]
